FAERS Safety Report 6136348-2 (Version None)
Quarter: 2009Q1

REPORT INFORMATION
  Report Type: 
  Country: None (occurrence: None)
  Receive Date: 20090325
  Receipt Date: 20090309
  Transmission Date: 20090719
  Serious: Yes (Life-Threatening, Other)
  Sender: FDA-Public Use
  Company Number: PAR_02895_2009

PATIENT
  Sex: Male

DRUGS (2)
  1. IBUPROFEN [Suspect]
     Indication: DRUG USE FOR UNKNOWN INDICATION
     Dosage: DF
  2. ALEVE [Suspect]
     Indication: BACK PAIN
     Dosage: 440 MG 1X ORAL
     Route: 048
     Dates: start: 20090201, end: 20090201

REACTIONS (8)
  - ANAPHYLACTIC SHOCK [None]
  - CONVULSION [None]
  - DYSPNOEA [None]
  - FALL [None]
  - FEELING COLD [None]
  - FEELING HOT [None]
  - MALAISE [None]
  - MUSCLE SPASMS [None]
